FAERS Safety Report 13555358 (Version 2)
Quarter: 2017Q2

REPORT INFORMATION
  Report Type: Report from Study
  Country: None (occurrence: US)
  Receive Date: 20170517
  Receipt Date: 20170616
  Transmission Date: 20170830
  Serious: Yes (Hospitalization)
  Sender: FDA-Public Use
  Company Number: US-ABBVIE-17K-163-1976730-00

PATIENT
  Sex: Male

DRUGS (1)
  1. HUMIRA [Suspect]
     Active Substance: ADALIMUMAB
     Indication: COLITIS ULCERATIVE
     Route: 058
     Dates: end: 20170424

REACTIONS (6)
  - Frequent bowel movements [Unknown]
  - Anorectal discomfort [Unknown]
  - Rectal haemorrhage [Unknown]
  - Rectal abscess [Recovering/Resolving]
  - Fistula [Recovering/Resolving]
  - Procedural pain [Unknown]
